FAERS Safety Report 5270394-6 (Version None)
Quarter: 2007Q1

REPORT INFORMATION
  Report Type: 
  Country: None (occurrence: None)
  Receive Date: 20070320
  Receipt Date: 20070314
  Transmission Date: 20070707
  Serious: Yes (Death)
  Sender: FDA-Public Use
  Company Number: CA-ROXANE LABORATORIES, INC-2007-DE-01554GD

PATIENT
  Age: 30 Year
  Sex: Male

DRUGS (2)
  1. HYDROCHLOROTHIAZIDE [Suspect]
     Indication: HYPERTENSION
  2. OLANZAPINE [Suspect]
     Indication: SCHIZOPHRENIA, PARANOID TYPE
     Dosage: 15 - 20 MG

REACTIONS (6)
  - MYELODYSPLASTIC SYNDROME [None]
  - MYELOID LEUKAEMIA [None]
  - NEUTROPENIA [None]
  - PANCYTOPENIA [None]
  - PNEUMONIA [None]
  - STREPTOCOCCAL SEPSIS [None]
